FAERS Safety Report 23489598 (Version 1)
Quarter: 2024Q1

REPORT INFORMATION
  Report Type: Spontaneous
  Country: US (occurrence: None)
  Receive Date: 20240206
  Receipt Date: 20240206
  Transmission Date: 20240410
  Serious: No
  Sender: FDA-Public Use
  Company Number: US-ROCHE-3460090

PATIENT

DRUGS (1)
  1. XOLAIR [Suspect]
     Active Substance: OMALIZUMAB
     Indication: Product used for unknown indication
     Dosage: FORM OF ADMIN: VIAL
     Route: 065

REACTIONS (3)
  - Product dose omission issue [Unknown]
  - Product container issue [Unknown]
  - No adverse event [Unknown]
